FAERS Safety Report 10103417 (Version 10)
Quarter: 2015Q1

REPORT INFORMATION
  Report Type: Report from Study
  Country: US (occurrence: US)
  Receive Date: 20140424
  Receipt Date: 20150128
  Transmission Date: 20150720
  Serious: Yes (Other)
  Sender: FDA-Public Use
  Company Number: US-VERTEX PHARMACEUTICALS INC-2014-000709

PATIENT
  Age: 19 Year
  Sex: Female
  Weight: 60 kg

DRUGS (29)
  1. XOPENEX [Concomitant]
     Active Substance: LEVALBUTEROL HYDROCHLORIDE
     Indication: INCREASED VISCOSITY OF BRONCHIAL SECRETION
     Dosage: 1.25 MG, BID
     Route: 055
     Dates: start: 200403
  2. COLISTIN [Concomitant]
     Active Substance: COLISTIN
     Dosage: 150 MG, BID, EVERY 3 MONTHS
  3. LACTOBACILLUS [Concomitant]
     Active Substance: LACTOBACILLUS ACIDOPHILUS
     Dosage: UNK
  4. MUCINEX [Concomitant]
     Active Substance: GUAIFENESIN
     Dosage: UNK
  5. PREDNISONE. [Concomitant]
     Active Substance: PREDNISONE
     Dosage: 35 MG, QD
  6. LANTUS [Concomitant]
     Active Substance: INSULIN GLARGINE
     Dosage: UNK
     Dates: start: 20140319
  7. ZENPEP [Concomitant]
     Active Substance: PANCRELIPASE\PANCRELIPASE AMYLASE\PANCRELIPASE LIPASE\PANCRELIPASE PROTEASE
     Dosage: UNK
  8. CALCIUM [Concomitant]
     Active Substance: CALCIUM
     Dosage: UNK
  9. AZITHROMYCIN [Concomitant]
     Active Substance: AZITHROMYCIN ANHYDROUS
     Indication: INFLAMMATION
     Dosage: 500 MG, M/W/F
     Route: 048
     Dates: start: 200303
  10. PULMOZYME [Concomitant]
     Active Substance: DORNASE ALFA
     Dosage: UNK
  11. TOBRAMYCIN. [Concomitant]
     Active Substance: TOBRAMYCIN
     Dosage: 300 MG, BID, EVERY 3 MONTHS
     Dates: start: 200204
  12. SINUS RINSE [Concomitant]
     Dosage: UNK
  13. MEPHYTON [Concomitant]
     Active Substance: PHYTONADIONE
     Dosage: UNK
  14. VX-770 FDC [Suspect]
     Active Substance: IVACAFTOR
     Indication: CYSTIC FIBROSIS
     Dosage: 250 MG, Q12H
     Route: 048
     Dates: start: 20130916, end: 20131118
  15. VX-770 FDC [Suspect]
     Active Substance: IVACAFTOR
     Dosage: 250 MG, Q12H
     Route: 048
     Dates: start: 20131125, end: 20140304
  16. HYPERTONIC SALINE SOLUTION [Concomitant]
     Active Substance: SODIUM CHLORIDE
     Indication: INCREASED VISCOSITY OF BRONCHIAL SECRETION
     Dosage: 4 ML, BID
     Route: 055
     Dates: start: 200901
  17. PRILOSEC [Concomitant]
     Active Substance: OMEPRAZOLE MAGNESIUM
     Dosage: UNK
  18. LANTUS [Concomitant]
     Active Substance: INSULIN GLARGINE
     Dosage: UNK
     Dates: end: 201401
  19. CAYSTON [Concomitant]
     Active Substance: AZTREONAM
     Dosage: 175 MG, BID, EVERY 3 MONTHS
  20. TOBRADEX [Concomitant]
     Active Substance: DEXAMETHASONE\TOBRAMYCIN
  21. VX-809 FDC [Suspect]
     Active Substance: IVACAFTOR
     Indication: CYSTIC FIBROSIS
     Dosage: 400 MG, Q12H
     Route: 048
     Dates: start: 20130916, end: 20131118
  22. VORICONAZOLE. [Concomitant]
     Active Substance: VORICONAZOLE
     Indication: ASPERGILLUS INFECTION
     Dosage: 2 PILLS, QD
     Route: 048
     Dates: start: 20130917, end: 20131108
  23. VITAMIN D [Concomitant]
     Active Substance: CHOLECALCIFEROL
     Dosage: UNK
  24. PREDNISONE. [Concomitant]
     Active Substance: PREDNISONE
     Dosage: 5 MG, QD
     Dates: start: 20140321
  25. VX-809 FDC [Suspect]
     Active Substance: IVACAFTOR
     Dosage: 400 MG, Q12H
     Route: 048
     Dates: start: 20131125, end: 20140304
  26. ITRACONAZOLE. [Concomitant]
     Active Substance: ITRACONAZOLE
     Indication: ASPERGILLUS INFECTION
     Dosage: 2 PILLS, QD
     Route: 048
     Dates: start: 200504, end: 20130917
  27. FLONASE [Concomitant]
     Active Substance: FLUTICASONE PROPIONATE
     Dosage: UNK
  28. AQUADEKS [Concomitant]
     Dosage: UNK
  29. HUMALOG [Concomitant]
     Active Substance: INSULIN LISPRO
     Dosage: UNK

REACTIONS (4)
  - Alanine aminotransferase increased [None]
  - Liver function test abnormal [Recovered/Resolved]
  - Aspartate aminotransferase increased [None]
  - Blood creatine phosphokinase increased [Not Recovered/Not Resolved]

NARRATIVE: CASE EVENT DATE: 20130916
